FAERS Safety Report 7864144-4 (Version None)
Quarter: 2011Q4

REPORT INFORMATION
  Report Type: 
  Country: None (occurrence: None)
  Receive Date: 20111028
  Receipt Date: 20110928
  Transmission Date: 20120403
  Serious: Yes (Other)
  Sender: FDA-Public Use
  Company Number: CH-US-EMD SERONO, INC.-7090381

PATIENT
  Sex: Female
  Weight: 80 kg

DRUGS (5)
  1. THIAMINE HCL [Concomitant]
     Indication: EYE DISORDER
     Route: 048
     Dates: start: 20100101
  2. SODIPRYL R [Concomitant]
     Indication: RETINAL VASCULAR DISORDER
     Route: 048
     Dates: start: 20110101
  3. REBIF [Suspect]
     Indication: MULTIPLE SCLEROSIS
     Route: 058
     Dates: start: 20100813
  4. ASPIRIN MINI [Concomitant]
     Indication: EYE PAIN
     Route: 048
     Dates: start: 20110701
  5. NAPROXEN [Concomitant]
     Indication: EYE PAIN
     Route: 048
     Dates: start: 20100801

REACTIONS (2)
  - VULVOVAGINAL MYCOTIC INFECTION [None]
  - LIPOEDEMA [None]
